FAERS Safety Report 19891589 (Version 5)
Quarter: 2023Q1

REPORT INFORMATION
  Report Type: Report from Study
  Country: BR (occurrence: BR)
  Receive Date: 20210928
  Receipt Date: 20230119
  Transmission Date: 20230418
  Serious: No
  Sender: FDA-Public Use
  Company Number: BR-NOVARTISPH-NVSC2021BR218331

PATIENT
  Sex: Male

DRUGS (6)
  1. COSENTYX [Suspect]
     Active Substance: SECUKINUMAB
     Indication: Ankylosing spondylitis
     Dosage: 150 MG, (ATTACK DOSES)
     Route: 065
     Dates: start: 202105
  2. COSENTYX [Suspect]
     Active Substance: SECUKINUMAB
     Indication: Psoriasis
     Dosage: 150 MG, QMO
     Route: 065
  3. COSENTYX [Suspect]
     Active Substance: SECUKINUMAB
     Dosage: UNK
     Route: 065
     Dates: start: 20210710
  4. COSENTYX [Suspect]
     Active Substance: SECUKINUMAB
     Dosage: UNK
     Route: 065
     Dates: start: 20210831
  5. COSENTYX [Suspect]
     Active Substance: SECUKINUMAB
     Dosage: UNK
     Route: 065
     Dates: start: 20220110
  6. PANTHENOL [Concomitant]
     Active Substance: PANTHENOL
     Indication: Skin disorder
     Dosage: UNK
     Route: 065

REACTIONS (7)
  - Hypersensitivity [Recovered/Resolved]
  - Skin haemorrhage [Unknown]
  - Acne pustular [Unknown]
  - General physical health deterioration [Not Recovered/Not Resolved]
  - Psoriasis [Not Recovered/Not Resolved]
  - Back pain [Unknown]
  - Drug ineffective [Not Recovered/Not Resolved]

NARRATIVE: CASE EVENT DATE: 20210101
